FAERS Safety Report 20317923 (Version 1)
Quarter: 2022Q1

REPORT INFORMATION
  Report Type: Spontaneous
  Country: US (occurrence: None)
  Receive Date: 20220108
  Receipt Date: 20220108
  Transmission Date: 20220423
  Serious: No
  Sender: FDA-Public Use
  Company Number: None

PATIENT
  Sex: Female
  Weight: 45.45 kg

DRUGS (2)
  1. INGREZZA [Suspect]
     Active Substance: VALBENAZINE
     Indication: Tardive dyskinesia
     Route: 048
     Dates: start: 20210111, end: 20211223
  2. DEVICE [Concomitant]
     Active Substance: DEVICE

REACTIONS (6)
  - Cardiac disorder [None]
  - Respiratory disorder [None]
  - Tremor [None]
  - Hypoaesthesia [None]
  - Musculoskeletal stiffness [None]
  - Pruritus [None]
